FAERS Safety Report 6471347-2 (Version None)
Quarter: 2009Q4

REPORT INFORMATION
  Report Type: 
  Country: None (occurrence: None)
  Receive Date: 20091203
  Receipt Date: 20080215
  Transmission Date: 20100525
  Serious: Yes (Other)
  Sender: FDA-Public Use
  Company Number: GR-ELI_LILLY_AND_COMPANY-GR200802000362

PATIENT
  Age: 69 Year
  Sex: Female
  Weight: 84 kg

DRUGS (6)
  1. FORTEO [Suspect]
     Indication: MENOPAUSAL SYMPTOMS
     Dosage: 20 UG, DAILY (1/D)
     Route: 058
     Dates: start: 20061101, end: 20071201
  2. TENORMIN [Concomitant]
     Indication: HYPERTENSION
     Dosage: UNK, UNKNOWN
     Route: 065
  3. LIVIAL [Concomitant]
     Indication: MENOPAUSAL SYMPTOMS
     Dosage: UNK, UNKNOWN
     Route: 065
     Dates: start: 20061101
  4. ATACAND [Concomitant]
     Indication: HYPERTENSION
     Dosage: UNK, UNKNOWN
     Route: 065
  5. ENTACT                             /01588501/ [Concomitant]
     Indication: DEPRESSION
     Dosage: UNK, UNKNOWN
     Route: 065
  6. T4 [Concomitant]
     Indication: THYROID DISORDER
     Dosage: UNK, UNKNOWN
     Route: 065

REACTIONS (1)
  - MULTIPLE MYELOMA [None]
